FAERS Safety Report 10161220 (Version 2)
Quarter: 2014Q2

REPORT INFORMATION
  Report Type: Report from Study
  Country: MX (occurrence: MX)
  Receive Date: 20140508
  Receipt Date: 20140508
  Transmission Date: 20141212
  Serious: Yes (Other)
  Sender: FDA-Public Use
  Company Number: PHHY2014MX008137

PATIENT
  Age: 53 Year
  Sex: Female

DRUGS (6)
  1. GALVUS MET [Suspect]
     Indication: DIABETES MELLITUS
     Dosage: 1.75 UKN, DAILY
  2. RASILEZ [Suspect]
     Indication: HYPERTENSION
     Dosage: 0.5 DF (150MG), DAILY
     Route: 048
     Dates: start: 20110814
  3. RASILEZ [Suspect]
     Dosage: 0.25 DF (150 MG), DAILY
     Route: 048
  4. RASILEZ [Suspect]
     Dosage: 1 DF (150MG), UNK
  5. DIABION                            /01763801/ [Concomitant]
     Indication: VITAMIN SUPPLEMENTATION
     Dosage: UNK UKN, UNK
  6. LYRICA [Concomitant]
     Dosage: 2 DF, WEEKLY
     Route: 048

REACTIONS (10)
  - Diabetes mellitus inadequate control [Not Recovered/Not Resolved]
  - Ligament sprain [Not Recovered/Not Resolved]
  - Feeling abnormal [Not Recovered/Not Resolved]
  - Stress [Unknown]
  - Cough [Not Recovered/Not Resolved]
  - Headache [Unknown]
  - Blood pressure increased [Not Recovered/Not Resolved]
  - Drug hypersensitivity [Not Recovered/Not Resolved]
  - Dizziness [Not Recovered/Not Resolved]
  - Wrong technique in drug usage process [Not Recovered/Not Resolved]
